FAERS Safety Report 19866324 (Version 1)
Quarter: 2021Q3

REPORT INFORMATION
  Report Type: Spontaneous
  Country: GB (occurrence: GB)
  Receive Date: 20210921
  Receipt Date: 20210921
  Transmission Date: 20211014
  Serious: Yes (Other)
  Sender: FDA-Public Use
  Company Number: GB-B.BRAUN MEDICAL INC.-2118621

PATIENT
  Age: 50 Year
  Sex: Male

DRUGS (4)
  1. PAROXETINE HYDROCHLORIDE. [Suspect]
     Active Substance: PAROXETINE HYDROCHLORIDE
  2. ACETAMINOPHEN. [Suspect]
     Active Substance: ACETAMINOPHEN
  3. STILNOCT [Suspect]
     Active Substance: ZOLPIDEM TARTRATE
  4. SEROXAT [Suspect]
     Active Substance: PAROXETINE HYDROCHLORIDE

REACTIONS (6)
  - Personality disorder [None]
  - Emotional disorder [None]
  - Mental disorder [None]
  - Depression [None]
  - Insomnia [None]
  - Drug dependence [None]
